FAERS Safety Report 16509179 (Version 1)
Quarter: 2019Q3

REPORT INFORMATION
  Report Type: Spontaneous
  Country: US (occurrence: US)
  Receive Date: 20190701
  Receipt Date: 20190701
  Transmission Date: 20191004
  Serious: Yes (Other)
  Sender: FDA-Public Use
  Company Number: US-PROCTER_AND_GAMBLE-GS16136092

PATIENT
  Age: 56 Year
  Sex: Female
  Weight: 58.51 kg

DRUGS (7)
  1. CREST PRO-HEALTH HD [Suspect]
     Active Substance: STANNOUS FLUORIDE
     Dosage: COVER THE BRISTLES, 2 /DAY
     Route: 002
     Dates: start: 20160610, end: 201608
  2. PROLIXIN [Concomitant]
     Active Substance: FLUPHENAZINE HYDROCHLORIDE
     Indication: PSYCHOTIC DISORDER
     Dosage: 25 MG, 1 /MONTH
     Route: 050
  3. BENZTROPINE. [Concomitant]
     Active Substance: BENZTROPINE
     Indication: PSYCHOTIC DISORDER
     Dosage: 2 MG, 2 /DAY
  4. CLONAZEPAM. [Concomitant]
     Active Substance: CLONAZEPAM
     Indication: ANXIETY
     Dosage: 0.5 MG, 2 /DAY
  5. CYCLOBENZAPRINE. [Concomitant]
     Active Substance: CYCLOBENZAPRINE
     Indication: MUSCLE SPASMS
     Dosage: UNK, 4 /DAY
  6. CREST PRO-HEALTH HD [Suspect]
     Active Substance: STANNOUS FLUORIDE
     Dosage: COVER THE BRISTLES, 2 /DAY
     Route: 002
     Dates: start: 20160610, end: 201608
  7. NAPROXEN. [Concomitant]
     Active Substance: NAPROXEN
     Indication: PAIN
     Dosage: 500 MG, 2 /DAY

REACTIONS (7)
  - Condition aggravated [Not Recovered/Not Resolved]
  - Tooth disorder [Not Recovered/Not Resolved]
  - Product contamination chemical [Unknown]
  - Tooth injury [Not Recovered/Not Resolved]
  - Tooth erosion [Not Recovered/Not Resolved]
  - Dental caries [Not Recovered/Not Resolved]
  - Tooth discolouration [Not Recovered/Not Resolved]

NARRATIVE: CASE EVENT DATE: 201608
